FAERS Safety Report 10863154 (Version 3)
Quarter: 2015Q2

REPORT INFORMATION
  Report Type: Report from Study
  Country: NZ (occurrence: NZ)
  Receive Date: 20150223
  Receipt Date: 20150619
  Transmission Date: 20150821
  Serious: Yes (Other)
  Sender: FDA-Public Use
  Company Number: PHHY2015NZ020995

PATIENT
  Age: 45 Year
  Sex: Male

DRUGS (1)
  1. CLOZARIL [Suspect]
     Active Substance: CLOZAPINE
     Indication: SCHIZOPHRENIA
     Dosage: UNK
     Route: 048
     Dates: start: 19960726

REACTIONS (3)
  - Salivary hypersecretion [Unknown]
  - Mental disorder [Recovered/Resolved]
  - Viral upper respiratory tract infection [Unknown]

NARRATIVE: CASE EVENT DATE: 201502
